FAERS Safety Report 20231513 (Version 2)
Quarter: 2021Q4

REPORT INFORMATION
  Report Type: Spontaneous
  Country: TR (occurrence: TR)
  Receive Date: 20211227
  Receipt Date: 20211231
  Transmission Date: 20220303
  Serious: No
  Sender: FDA-Public Use
  Company Number: None

PATIENT
  Age: 32 Year
  Sex: Female

DRUGS (1)
  1. ULIPRISTAL ACETATE [Suspect]
     Active Substance: ULIPRISTAL ACETATE
     Route: 048
     Dates: start: 20211211, end: 20211211

REACTIONS (3)
  - Umbilical haemorrhage [Recovered/Resolved]
  - Exposure via breast milk [Unknown]
  - Off label use [Unknown]

NARRATIVE: CASE EVENT DATE: 20211211
